FAERS Safety Report 14689380 (Version 1)
Quarter: 2018Q1

REPORT INFORMATION
  Report Type: Spontaneous
  Country: US (occurrence: US)
  Receive Date: 20180328
  Receipt Date: 20180328
  Transmission Date: 20180509
  Serious: Yes (Life-Threatening, Other)
  Sender: FDA-Public Use
  Company Number: US-PFIZER INC-2018127546

PATIENT
  Age: 74 Year
  Sex: Male
  Weight: 59.65 kg

DRUGS (1)
  1. DAPTOMYCIN. [Suspect]
     Active Substance: DAPTOMYCIN
     Indication: STAPHYLOCOCCAL SEPSIS
     Dosage: 1200 MG, 1X/DAY, EVERY 24 HOURS, IV INFUSION OVER 30 MINUTES
     Route: 042
     Dates: start: 20180323, end: 20180323

REACTIONS (2)
  - Chills [Unknown]
  - Dyspnoea [Unknown]

NARRATIVE: CASE EVENT DATE: 20180323
